FAERS Safety Report 5672504-5 (Version None)
Quarter: 2008Q1

REPORT INFORMATION
  Report Type: 
  Country: None (occurrence: None)
  Receive Date: 20080318
  Receipt Date: 20080318
  Transmission Date: 20080703
  Serious: Yes (Hospitalization)
  Sender: FDA-Public Use
  Company Number: None

PATIENT
  Age: 64 Year
  Sex: Male
  Weight: 75 kg

DRUGS (1)
  1. DICLOFENAC SODIUM [Suspect]
     Dosage: 75MG BID PO
     Route: 048
     Dates: start: 20030314, end: 20050420

REACTIONS (8)
  - CHEST PAIN [None]
  - CHOLELITHIASIS [None]
  - DECREASED APPETITE [None]
  - EMPHYSEMA [None]
  - GASTROINTESTINAL DISORDER [None]
  - GRANULOMA [None]
  - PULMONARY FIBROSIS [None]
  - SPLENOMEGALY [None]
